FAERS Safety Report 10952571 (Version 2)
Quarter: 2015Q2

REPORT INFORMATION
  Report Type: Spontaneous
  Country: US (occurrence: US)
  Receive Date: 20150325
  Receipt Date: 20150429
  Transmission Date: 20150821
  Serious: Yes (Hospitalization)
  Sender: FDA-Public Use
  Company Number: US-SA-2015SA035707

PATIENT
  Age: 60 Year
  Sex: Male
  Weight: 108 kg

DRUGS (3)
  1. LANTUS SOLOSTAR [Suspect]
     Active Substance: INSULIN GLARGINE
     Indication: TYPE 2 DIABETES MELLITUS
     Dosage: DOSE:12 UNIT(S)
     Route: 065
     Dates: start: 20150206, end: 20150322
  2. SOLOSTAR [Concomitant]
     Active Substance: DEVICE
  3. LANTUS SOLOSTAR [Suspect]
     Active Substance: INSULIN GLARGINE
     Indication: TYPE 2 DIABETES MELLITUS
     Dosage: DOSAGE-12 UNITS DOSE:12 UNIT(S)
     Route: 065

REACTIONS (3)
  - Orchitis [Not Recovered/Not Resolved]
  - Incorrect product storage [Unknown]
  - Prostate cancer [Not Recovered/Not Resolved]
